FAERS Safety Report 13771204 (Version 1)
Quarter: 2017Q3

REPORT INFORMATION
  Report Type: Spontaneous
  Country: US (occurrence: US)
  Receive Date: 20170720
  Receipt Date: 20170720
  Transmission Date: 20171127
  Serious: Yes (Other)
  Sender: FDA-Public Use
  Company Number: None

PATIENT
  Age: 81 Year
  Sex: Female
  Weight: 89 kg

DRUGS (1)
  1. EXEMESTANE. [Suspect]
     Active Substance: EXEMESTANE
     Indication: BREAST CANCER FEMALE
     Dosage: ?          OTHER DOSE:MG;?
     Route: 048
     Dates: start: 20170412

REACTIONS (5)
  - Heart rate increased [None]
  - Blood pressure increased [None]
  - Arthralgia [None]
  - Diabetes mellitus inadequate control [None]
  - Pruritus [None]

NARRATIVE: CASE EVENT DATE: 20170717
